FAERS Safety Report 9516372 (Version 1)
Quarter: 2013Q3

REPORT INFORMATION
  Report Type: Spontaneous
  Country: TW (occurrence: TW)
  Receive Date: 20130911
  Receipt Date: 20130911
  Transmission Date: 20140515
  Serious: Yes (Life-Threatening, Other)
  Sender: FDA-Public Use
  Company Number: TW-ROXANE LABORATORIES, INC.-2013-RO-01497RO

PATIENT
  Age: 47 Year
  Sex: Female

DRUGS (8)
  1. QUETIAPINE FUMARATE [Suspect]
     Indication: SCHIZOPHRENIA
     Dosage: 400 MG
  2. RISPERIDONE [Suspect]
     Dosage: 1 MG
  3. BROMAZEPAM [Concomitant]
     Dosage: 3 MG
  4. BROMAZEPAM [Concomitant]
  5. VENLAFAXINE [Concomitant]
     Dosage: 75 MG
  6. BROTIZOLAM [Concomitant]
  7. ACETAMINOPHEN [Concomitant]
     Indication: UPPER RESPIRATORY TRACT INFECTION
     Dosage: 1500 MG
  8. MGO [Concomitant]

REACTIONS (3)
  - Hepatocellular injury [Recovered/Resolved]
  - Haemangioma of liver [Unknown]
  - Upper respiratory tract infection [Unknown]
